FAERS Safety Report 10519153 (Version 1)
Quarter: 2014Q4

REPORT INFORMATION
  Report Type: Spontaneous
  Country: US (occurrence: None)
  Receive Date: 20141014
  Receipt Date: 20141014
  Transmission Date: 20150528
  Serious: Yes (Life-Threatening, Disabling, Other)
  Sender: FDA-Public Use
  Company Number: None

PATIENT
  Age: 67 Year
  Sex: Male
  Weight: 90.72 kg

DRUGS (2)
  1. AUGMENTIN [Suspect]
     Active Substance: AMOXICILLIN\CLAVULANATE POTASSIUM
     Route: 048
  2. PREDNISONE. [Suspect]
     Active Substance: PREDNISONE

REACTIONS (3)
  - Symptom masked [None]
  - Reaction to drug excipients [None]
  - Urticaria [None]

NARRATIVE: CASE EVENT DATE: 20140915
